FAERS Safety Report 25871134 (Version 1)
Quarter: 2025Q4

REPORT INFORMATION
  Report Type: Spontaneous
  Country: US (occurrence: None)
  Receive Date: 20251001
  Receipt Date: 20251001
  Transmission Date: 20260118
  Serious: Yes (Hospitalization, Other)
  Sender: FDA-CTU
  Company Number: None

PATIENT
  Age: 58 Year
  Sex: Male
  Weight: 109.1 kg

DRUGS (2)
  1. VANCOMYCIN [Suspect]
     Active Substance: VANCOMYCIN
     Indication: Phlebitis
     Dosage: OTHER FREQUENCY : ONCE;?
     Route: 041
     Dates: start: 20250929, end: 20250929
  2. VANCOMYCIN [Suspect]
     Active Substance: VANCOMYCIN
     Indication: Thrombophlebitis

REACTIONS (4)
  - Dialysis [None]
  - Dyspnoea [None]
  - Hypotension [None]
  - Drug hypersensitivity [None]

NARRATIVE: CASE EVENT DATE: 20250929
